FAERS Safety Report 9362760 (Version 1)
Quarter: 2013Q2

REPORT INFORMATION
  Report Type: Spontaneous
  Country: US (occurrence: US)
  Receive Date: 20130623
  Receipt Date: 20130623
  Transmission Date: 20140414
  Serious: Yes (Death, Hospitalization)
  Sender: FDA-Public Use
  Company Number: US-SANOFI-AVENTIS-2013SA060124

PATIENT
  Age: 64 Year
  Sex: Male

DRUGS (2)
  1. HEPARIN (SALT NOT SPECIFIED) [Suspect]
     Indication: PROPHYLAXIS
     Dosage: BOLUS
     Route: 042
  2. ENOXAPARIN SODIUM [Suspect]
     Indication: PRODUCT USED FOR UNKNOWN INDICATION
     Route: 058

REACTIONS (15)
  - Anaphylactoid reaction [Fatal]
  - Dyspnoea [Fatal]
  - Flushing [Fatal]
  - Hypotension [Fatal]
  - Unresponsive to stimuli [Fatal]
  - Areflexia [Fatal]
  - Corneal reflex decreased [Fatal]
  - Cardio-respiratory arrest [Fatal]
  - Cardiac arrest [Fatal]
  - Ventricular tachycardia [Fatal]
  - Bundle branch block right [Fatal]
  - Brain injury [Fatal]
  - Thrombocytopenia [Unknown]
  - Skin lesion [Unknown]
  - Oedema [Unknown]
